FAERS Safety Report 9342982 (Version 2)
Quarter: 2013Q3

REPORT INFORMATION
  Report Type: Report from Study
  Country: CN (occurrence: CN)
  Receive Date: 20130611
  Receipt Date: 20130801
  Transmission Date: 20140515
  Serious: Yes (Death, Hospitalization, Other)
  Sender: FDA-Public Use
  Company Number: CN-CELGENEUS-035-CCAZA-13032662

PATIENT
  Age: 61 Year
  Sex: Female
  Weight: 51 kg

DRUGS (14)
  1. AZACITIDINE INJECTABLE [Suspect]
     Indication: MYELODYSPLASTIC SYNDROME
     Dosage: 75 MILLIGRAM/SQ. METER
     Route: 058
     Dates: start: 20130220, end: 20130226
  2. AZACITIDINE INJECTABLE [Suspect]
     Dosage: 75 MILLIGRAM/SQ. METER
     Route: 058
     Dates: start: 20130326, end: 20130401
  3. AZACITIDINE INJECTABLE [Suspect]
     Dosage: 75 MILLIGRAM/SQ. METER
     Route: 058
     Dates: end: 20130603
  4. ONDANSETRON HYDROCHLORIDE [Concomitant]
     Indication: ABDOMINAL DISCOMFORT
     Dosage: 30MIN BEFORE AZA INJECTION
     Route: 041
     Dates: start: 20130220, end: 20130226
  5. ONDANSETRON HYDROCHLORIDE [Concomitant]
     Dosage: 30MIN BEFORE AZA INJECTION
     Route: 041
     Dates: start: 20130326, end: 20130401
  6. VALACICLOVIR [Concomitant]
     Indication: ANTIVIRAL PROPHYLAXIS
     Dosage: 600 MILLIGRAM
     Route: 048
     Dates: start: 20130306, end: 20130310
  7. CEFACLOR [Concomitant]
     Indication: ANTIINFLAMMATORY THERAPY
     Dosage: 750 MILLIGRAM
     Route: 048
     Dates: start: 20130306, end: 20130310
  8. CEFACLOR [Concomitant]
     Dosage: 750 MILLIGRAM
     Route: 048
     Dates: start: 20130320, end: 20130324
  9. DEXAMETHASONE [Concomitant]
     Indication: ALLERGY PROPHYLAXIS
     Dosage: 5 MILLIGRAM
     Route: 041
     Dates: start: 20130226, end: 20130226
  10. FLUCONAZOLE [Concomitant]
     Indication: ANTIFUNGAL PROPHYLAXIS
     Dosage: 150 MILLIGRAM
     Route: 048
     Dates: start: 20130306, end: 20130310
  11. METRONIDAZOLE [Concomitant]
     Indication: ANTIINFLAMMATORY THERAPY
     Dosage: 750 MILLIGRAM
     Route: 048
     Dates: start: 20130320, end: 20130324
  12. METRONIDAZOLE [Concomitant]
     Indication: GINGIVITIS
     Dosage: .5 GRAM
     Route: 065
     Dates: start: 20130401, end: 20130408
  13. PROMETHAZINE [Concomitant]
     Indication: PROPHYLAXIS
     Dosage: 25 MILLIGRAM
     Route: 048
     Dates: start: 20130329, end: 20130329
  14. VORICONAZOLE [Concomitant]
     Indication: ANTIFUNGAL PROPHYLAXIS
     Dosage: .2 GRAM
     Route: 041
     Dates: start: 20130404, end: 20130408

REACTIONS (3)
  - Pneumonia [Fatal]
  - Subdural haemorrhage [Not Recovered/Not Resolved]
  - Febrile neutropenia [Recovered/Resolved]
